FAERS Safety Report 20587763 (Version 1)
Quarter: 2022Q1

REPORT INFORMATION
  Report Type: Spontaneous
  Country: US (occurrence: None)
  Receive Date: 20220311
  Receipt Date: 20220311
  Transmission Date: 20220424
  Serious: Yes (Hospitalization)
  Sender: FDA-Public Use
  Company Number: None

PATIENT
  Age: 43 Year
  Sex: Female

DRUGS (1)
  1. EVUSHELD [Suspect]
     Active Substance: CILGAVIMAB\TIXAGEVIMAB

REACTIONS (5)
  - Vision blurred [None]
  - Dizziness [None]
  - Chest discomfort [None]
  - Loss of consciousness [None]
  - Injection related reaction [None]

NARRATIVE: CASE EVENT DATE: 20220305
